FAERS Safety Report 7374378-3 (Version None)
Quarter: 2011Q1

REPORT INFORMATION
  Report Type: 
  Country: None (occurrence: None)
  Receive Date: 20110325
  Receipt Date: 20110316
  Transmission Date: 20110831
  Serious: Yes (Hospitalization)
  Sender: FDA-Public Use
  Company Number: FR-BRISTOL-MYERS SQUIBB COMPANY-15415649

PATIENT
  Age: 73 Year
  Sex: Female

DRUGS (4)
  1. PHENOXYMETHYL PENICILLIN [Concomitant]
     Indication: ANTIBIOTIC PROPHYLAXIS
     Route: 048
     Dates: start: 20100624, end: 20101104
  2. LYSODREN [Suspect]
     Indication: ADRENOCORTICAL CARCINOMA
     Dosage: 3 TABLETS/DAY THEN 6 TABLETS/DAY AND THEN 9 TABLETS/DAY
     Route: 048
     Dates: start: 20101014, end: 20101105
  3. CACIT D3 [Concomitant]
     Indication: VITAMIN SUPPLEMENTATION
     Dosage: CACIT VITAMINE D3
     Route: 048
     Dates: start: 20100624
  4. HYDROCORTISONE [Concomitant]
     Indication: ADRENAL INSUFFICIENCY
     Route: 048
     Dates: start: 20100624

REACTIONS (1)
  - HEPATIC ENZYME INCREASED [None]
